FAERS Safety Report 7491120-6 (Version None)
Quarter: 2011Q2

REPORT INFORMATION
  Report Type: 
  Country: None (occurrence: None)
  Receive Date: 20110518
  Receipt Date: 20110518
  Transmission Date: 20111010
  Serious: No
  Sender: FDA-Public Use
  Company Number: None

PATIENT
  Age: 44 Year
  Sex: Male
  Weight: 86.1834 kg

DRUGS (1)
  1. LEVAQUIN [Suspect]
     Indication: CYSTITIS
     Dosage: 1 500MG 1 DAILY PO
     Route: 048
     Dates: start: 20090416, end: 20090425

REACTIONS (7)
  - ARTHRALGIA [None]
  - HYPOAESTHESIA [None]
  - CHEST PAIN [None]
  - PAIN IN EXTREMITY [None]
  - NECK PAIN [None]
  - MUSCULOSKELETAL PAIN [None]
  - NAUSEA [None]
